FAERS Safety Report 10897097 (Version 1)
Quarter: 2015Q1

REPORT INFORMATION
  Report Type: Spontaneous
  Country: US (occurrence: None)
  Receive Date: 20150302
  Receipt Date: 20150302
  Transmission Date: 20150721
  Serious: No
  Sender: FDA-Public Use
  Company Number: None

PATIENT
  Age: 36 Year
  Sex: Male

DRUGS (1)
  1. SUBOXONE [Suspect]
     Active Substance: BUPRENORPHINE HYDROCHLORIDE\NALOXONE HYDROCHLORIDE
     Indication: DRUG DEPENDENCE
     Route: 060
     Dates: start: 20141017

REACTIONS (7)
  - Asthenia [None]
  - Anxiety [None]
  - Feeling of body temperature change [None]
  - Myalgia [None]
  - Hyperhidrosis [None]
  - Irritability [None]
  - Nausea [None]

NARRATIVE: CASE EVENT DATE: 20150210
